FAERS Safety Report 9596166 (Version 2)
Quarter: 2013Q4

REPORT INFORMATION
  Report Type: Spontaneous
  Country: MY (occurrence: MY)
  Receive Date: 20131004
  Receipt Date: 20131004
  Transmission Date: 20140711
  Serious: Yes (Other)
  Sender: FDA-Public Use
  Company Number: MY-ACTAVIS-2012-10477

PATIENT
  Age: 81 Year
  Sex: Male

DRUGS (1)
  1. CLOPIDOGREL (UNKNOWN) [Suspect]
     Indication: ANTIPLATELET THERAPY
     Dosage: 75 MG, DAILY
     Route: 065

REACTIONS (1)
  - Ageusia [Not Recovered/Not Resolved]
